FAERS Safety Report 6180812-7 (Version None)
Quarter: 2009Q2

REPORT INFORMATION
  Report Type: 
  Country: None (occurrence: None)
  Receive Date: 20090506
  Receipt Date: 20090430
  Transmission Date: 20091009
  Serious: Yes (Death, Life-Threatening, Hospitalization, Disabling)
  Sender: FDA-Public Use
  Company Number: DE-CELGENEUS-062-C5013-09020582

PATIENT
  Sex: Male
  Weight: 78 kg

DRUGS (15)
  1. THALIDOMIDE [Suspect]
     Indication: MULTIPLE MYELOMA
     Route: 048
     Dates: start: 20090129, end: 20090210
  2. MELPHALAN [Suspect]
     Indication: MULTIPLE MYELOMA
     Route: 065
     Dates: start: 20090129, end: 20090202
  3. PREDNISONE [Suspect]
     Indication: MULTIPLE MYELOMA
     Route: 065
     Dates: start: 20090129, end: 20090202
  4. PANTOPRAZOLE SODIUM [Concomitant]
     Indication: PROPHYLAXIS
     Route: 048
     Dates: start: 20081220, end: 20090216
  5. LEVOTHYROXINE SODIUM [Concomitant]
     Indication: HYPOTHYROIDISM
     Route: 048
     Dates: start: 20081220, end: 20090216
  6. AMPHOTERICIN B [Concomitant]
     Indication: PROPHYLAXIS
     Route: 048
     Dates: start: 20090130, end: 20090201
  7. LACTULOSE [Concomitant]
     Indication: CONSTIPATION PROPHYLAXIS
     Route: 048
     Dates: start: 20090128, end: 20090216
  8. ALLOPURINOL [Concomitant]
     Route: 048
     Dates: start: 20090130, end: 20090201
  9. TRAMADOL HCL [Concomitant]
     Indication: PAIN
     Route: 048
     Dates: start: 20090128, end: 20090208
  10. METAMIZOL [Concomitant]
     Indication: PAIN
     Route: 048
     Dates: start: 20081220, end: 20090216
  11. TAMSULOSIN HCL [Concomitant]
     Indication: PROPHYLAXIS
     Route: 048
     Dates: start: 20090129, end: 20090211
  12. KALIUM [Concomitant]
     Route: 048
     Dates: start: 20090127, end: 20090211
  13. NADROPARIN [Concomitant]
     Indication: THROMBOSIS PROPHYLAXIS
     Route: 058
     Dates: start: 20090128, end: 20090202
  14. NADROPARIN [Concomitant]
     Route: 058
     Dates: start: 20090209, end: 20090209
  15. ACETYLSALICYLIC ACID [Concomitant]
     Indication: THROMBOSIS PROPHYLAXIS
     Route: 048
     Dates: start: 20090129, end: 20090208

REACTIONS (7)
  - BONE PAIN [None]
  - COUGH [None]
  - DIZZINESS [None]
  - HEPATITIS B [None]
  - MULTI-ORGAN FAILURE [None]
  - NAUSEA [None]
  - SEPSIS [None]
